FAERS Safety Report 10853790 (Version 1)
Quarter: 2015Q1

REPORT INFORMATION
  Report Type: Spontaneous
  Country: KR (occurrence: None)
  Receive Date: 20150218
  Receipt Date: 20150218
  Transmission Date: 20150721
  Serious: Yes (Death, Hospitalization)
  Sender: FDA-Public Use
  Company Number: IPC201502-000071

PATIENT
  Age: 84 Year
  Sex: Male

DRUGS (2)
  1. ALLOPURINOL (ALLOPURINOL) [Suspect]
     Active Substance: ALLOPURINOL
     Indication: CHRONIC KIDNEY DISEASE
  2. TORASEMIDE (TORASEMIDE) [Concomitant]
     Active Substance: TORSEMIDE

REACTIONS (3)
  - Off label use [None]
  - Cardiac arrest [None]
  - Drug reaction with eosinophilia and systemic symptoms [None]
